FAERS Safety Report 16848511 (Version 4)
Quarter: 2019Q4

REPORT INFORMATION
  Report Type: Spontaneous
  Country: GB (occurrence: GB)
  Receive Date: 20190925
  Receipt Date: 20191023
  Transmission Date: 20200122
  Serious: Yes (Hospitalization)
  Sender: FDA-Public Use
  Company Number: GB-AUROBINDO-AUR-APL-2019-053778

PATIENT
  Age: 7 Year
  Sex: Male
  Weight: 20 kg

DRUGS (12)
  1. CANNABIDIOL [Interacting]
     Active Substance: CANNABIDIOL
     Indication: LENNOX-GASTAUT SYNDROME
     Dosage: 100 MILLIGRAM, TWO TIMES A DAY
     Route: 048
     Dates: start: 20190624
  2. CANNABIDIOL [Interacting]
     Active Substance: CANNABIDIOL
     Dosage: 150 MILLIGRAM, TWO TIMES A DAY, (15 MG/KG/DAY)
     Route: 048
     Dates: start: 201908
  3. VALPROATE SODIUM. [Interacting]
     Active Substance: VALPROATE SODIUM
     Dosage: 240 MILLIGRAM, TWO TIMES A DAY
     Route: 065
     Dates: start: 2019, end: 20191007
  4. TOPIRAMATE. [Concomitant]
     Active Substance: TOPIRAMATE
     Indication: LENNOX-GASTAUT SYNDROME
     Dosage: 75 MILLIGRAM, TWO TIMES A DAY
     Route: 065
     Dates: start: 2016
  5. LAMOTRIGINE. [Interacting]
     Active Substance: LAMOTRIGINE
     Dosage: 40 MILLIGRAM, TWO TIMES A DAY
     Route: 065
     Dates: start: 20190401, end: 20190805
  6. RUFINAMIDE [Interacting]
     Active Substance: RUFINAMIDE
     Indication: LENNOX-GASTAUT SYNDROME
     Dosage: 300 MILLIGRAM, TWO TIMES A DAY
     Route: 065
     Dates: start: 2015, end: 20190805
  7. LAMOTRIGINE. [Suspect]
     Active Substance: LAMOTRIGINE
     Indication: LENNOX-GASTAUT SYNDROME
     Dosage: 50/50, UNK
     Route: 065
     Dates: end: 2019
  8. VALPROATE SODIUM. [Interacting]
     Active Substance: VALPROATE SODIUM
     Indication: LENNOX-GASTAUT SYNDROME
     Dosage: 300 MILLIGRAM, TWO TIMES A DAY
     Route: 065
     Dates: start: 20190805, end: 2019
  9. LAMOTRIGINE. [Interacting]
     Active Substance: LAMOTRIGINE
     Dosage: 40/40, UNK
     Route: 065
     Dates: start: 2019
  10. RUFINAMIDE [Interacting]
     Active Substance: RUFINAMIDE
     Dosage: 200 MILLIGRAM, TWO TIMES A DAY
     Route: 065
     Dates: start: 20190805
  11. VALPROATE SODIUM. [Interacting]
     Active Substance: VALPROATE SODIUM
     Dosage: 400 MILLIGRAM, TWO TIMES A DAY
     Route: 065
     Dates: start: 2013, end: 20190805
  12. VALPROATE SODIUM. [Interacting]
     Active Substance: VALPROATE SODIUM
     Dosage: 200 MILLIGRAM, TWO TIMES A DAY
     Route: 065
     Dates: start: 20191007

REACTIONS (4)
  - Nervousness [Recovered/Resolved]
  - Alanine aminotransferase increased [Recovered/Resolved]
  - Drug interaction [Unknown]
  - Epistaxis [Recovered/Resolved]

NARRATIVE: CASE EVENT DATE: 2019
